FAERS Safety Report 8531151-8 (Version None)
Quarter: 2012Q3

REPORT INFORMATION
  Report Type: 
  Country: None (occurrence: None)
  Receive Date: 20120723
  Receipt Date: 20120711
  Transmission Date: 20120928
  Serious: Yes (Other)
  Sender: FDA-Public Use
  Company Number: JP-VERTEX PHARMACEUTICALS INC.-AE-2012-009869

PATIENT
  Age: 66 Year
  Sex: Male

DRUGS (8)
  1. RIBAVIRIN [Concomitant]
     Indication: HEPATITIS C
     Route: 048
     Dates: start: 20120626, end: 20120629
  2. MICARDIS [Concomitant]
     Route: 048
     Dates: end: 20120629
  3. PEGINTERFERON ALFA-2B [Concomitant]
     Indication: HEPATITIS C
     Route: 058
     Dates: start: 20120626, end: 20120626
  4. CONIEL [Concomitant]
     Route: 048
     Dates: end: 20120629
  5. TELAVIC (TELAPREVIR) [Suspect]
     Indication: HEPATITIS C
     Route: 048
     Dates: start: 20120626, end: 20120629
  6. ALLOPURINOL [Concomitant]
     Route: 048
     Dates: start: 20120626, end: 20120629
  7. RABEPRAZOLE SODIUM [Concomitant]
     Route: 048
     Dates: end: 20120704
  8. URSO 250 [Concomitant]
     Route: 048

REACTIONS (1)
  - BLOOD CREATININE INCREASED [None]
